FAERS Safety Report 24578560 (Version 1)
Quarter: 2024Q4

REPORT INFORMATION
  Report Type: Spontaneous
  Country: US (occurrence: US)
  Receive Date: 20241105
  Receipt Date: 20241105
  Transmission Date: 20250115
  Serious: No
  Sender: APOTEX
  Company Number: US-APOTEX-2024AP012790

PATIENT
  Sex: Male

DRUGS (5)
  1. ABIRATERONE [Suspect]
     Active Substance: ABIRATERONE\ABIRATERONE ACETATE
     Indication: Product used for unknown indication
     Dosage: UNK
     Route: 065
  2. ORGOVYX [Suspect]
     Active Substance: RELUGOLIX
     Indication: Prostate cancer
     Dosage: 360 MILLIGRAM, QD
     Route: 048
     Dates: start: 202403, end: 202403
  3. ORGOVYX [Suspect]
     Active Substance: RELUGOLIX
     Dosage: 120 MILLIGRAM, QD
     Route: 048
     Dates: start: 2024
  4. PREDNISONE [Concomitant]
     Active Substance: PREDNISONE
     Indication: Product used for unknown indication
     Dosage: UNK
     Route: 065
  5. ALLEGRA [Concomitant]
     Active Substance: FEXOFENADINE HYDROCHLORIDE
     Indication: Product used for unknown indication
     Dosage: UNK
     Route: 065

REACTIONS (2)
  - Abdominal discomfort [Unknown]
  - Hot flush [Recovering/Resolving]
